FAERS Safety Report 10035962 (Version 1)
Quarter: 2014Q1

REPORT INFORMATION
  Report Type: Spontaneous
  Country: SE (occurrence: SE)
  Receive Date: 20140325
  Receipt Date: 20140325
  Transmission Date: 20141002
  Serious: Yes (Other)
  Sender: FDA-Public Use
  Company Number: SE-PFIZER INC-2014081469

PATIENT
  Age: 64 Year
  Sex: Male

DRUGS (3)
  1. LYRICA [Suspect]
     Indication: INTERVERTEBRAL DISC PROTRUSION
     Dosage: UNK
  2. LYRICA [Suspect]
     Indication: PAIN
  3. NOBLIGAN [Suspect]
     Dosage: UNK

REACTIONS (3)
  - Epilepsy [Unknown]
  - Neck pain [Unknown]
  - Erectile dysfunction [Recovered/Resolved]
